FAERS Safety Report 21246491 (Version 1)
Quarter: 2022Q3

REPORT INFORMATION
  Report Type: Spontaneous
  Country: US (occurrence: US)
  Receive Date: 20220824
  Receipt Date: 20220824
  Transmission Date: 20221026
  Serious: No
  Sender: FDA-Public Use
  Company Number: US-JNJFOC-20220838553

PATIENT
  Weight: 49.940 kg

DRUGS (1)
  1. SPRAVATO [Suspect]
     Active Substance: ESKETAMINE
     Indication: Major depression
     Route: 065
     Dates: start: 202012

REACTIONS (4)
  - Feeling abnormal [Unknown]
  - Amnesia [Unknown]
  - Confusional state [Unknown]
  - Disorientation [Unknown]
